FAERS Safety Report 18175738 (Version 85)
Quarter: 2025Q4

REPORT INFORMATION
  Report Type: Report from Study
  Country: US (occurrence: US)
  Receive Date: 20200820
  Receipt Date: 20251210
  Transmission Date: 20260117
  Serious: Yes (Hospitalization, Congenital Anomaly, Other)
  Sender: TAKEDA
  Company Number: US-SHIRE-US202026750

PATIENT
  Age: 60 Year
  Sex: Female
  Weight: 58.998 kg

DRUGS (107)
  1. HUMAN IMMUNOGLOBULIN G [Suspect]
     Active Substance: HUMAN IMMUNOGLOBULIN G
     Indication: Dermatomyositis
     Dosage: 40 GRAM, Q3WEEKS
  2. HUMAN IMMUNOGLOBULIN G [Suspect]
     Active Substance: HUMAN IMMUNOGLOBULIN G
     Dosage: 20 GRAM, 1/WEEK
  3. HUMAN IMMUNOGLOBULIN G [Suspect]
     Active Substance: HUMAN IMMUNOGLOBULIN G
     Dosage: 20 GRAM, 1/WEEK
  4. WEGOVY [Suspect]
     Active Substance: SEMAGLUTIDE
     Indication: Product used for unknown indication
     Dosage: UNK
  5. DIPHENHYDRAMINE [Concomitant]
     Active Substance: DIPHENHYDRAMINE
     Dosage: UNK
  6. ACETAMINOPHEN [Concomitant]
     Active Substance: ACETAMINOPHEN
     Dosage: UNK
  7. LYRICA [Concomitant]
     Active Substance: PREGABALIN
     Dosage: UNK
  8. ONDANSETRON HYDROCHLORIDE [Concomitant]
     Active Substance: ONDANSETRON HYDROCHLORIDE
     Dosage: UNK
  9. NITROSTAT [Concomitant]
     Active Substance: NITROGLYCERIN
     Dosage: UNK
  10. RESTORIL [Concomitant]
     Active Substance: TEMAZEPAM
     Dosage: UNK
  11. SULFAMETHOXAZOLE AND TRIMETHOPRIM [Concomitant]
     Active Substance: SULFAMETHOXAZOLE\TRIMETHOPRIM
     Dosage: UNK
  12. LEVOTHYROXINE SODIUM [Concomitant]
     Active Substance: LEVOTHYROXINE SODIUM
     Dosage: UNK
  13. PRAMIPEXOLE DIHYDROCHLORIDE [Concomitant]
     Active Substance: PRAMIPEXOLE DIHYDROCHLORIDE
     Dosage: UNK
  14. SODIUM CHLORIDE [Concomitant]
     Active Substance: SODIUM CHLORIDE
     Dosage: UNK
  15. RAMIPRIL [Concomitant]
     Active Substance: RAMIPRIL
     Dosage: UNK
  16. EPINEPHRINE [Concomitant]
     Active Substance: EPINEPHRINE
     Dosage: UNK
  17. FLUTICASONE PROPIONATE [Concomitant]
     Active Substance: FLUTICASONE PROPIONATE
     Dosage: UNK
  18. OXYCODONE AND ACETAMINOPHEN [Concomitant]
     Active Substance: ACETAMINOPHEN\OXYCODONE HYDROCHLORIDE
     Dosage: UNK
  19. ASTAXANTHIN [Concomitant]
     Active Substance: ASTAXANTHIN
     Dosage: UNK
  20. GLUTATHIONE [Concomitant]
     Active Substance: GLUTATHIONE
     Dosage: UNK
  21. PROLIA [Concomitant]
     Active Substance: DENOSUMAB
     Dosage: UNK
  22. LIDOCAINE\PRILOCAINE [Concomitant]
     Active Substance: LIDOCAINE\PRILOCAINE
     Dosage: UNK
  23. REGLAN [Concomitant]
     Active Substance: METOCLOPRAMIDE HYDROCHLORIDE
     Dosage: UNK
  24. GENTAMICIN SULFATE [Concomitant]
     Active Substance: GENTAMICIN SULFATE
     Dosage: UNK
  25. DOCUSATE SODIUM [Concomitant]
     Active Substance: DOCUSATE SODIUM
     Dosage: UNK
  26. NARCAN [Concomitant]
     Active Substance: NALOXONE HYDROCHLORIDE
     Dosage: UNK
  27. BUMETANIDE [Concomitant]
     Active Substance: BUMETANIDE
     Dosage: UNK
  28. MIDODRINE HYDROCHLORIDE [Concomitant]
     Active Substance: MIDODRINE HYDROCHLORIDE
     Dosage: UNK
  29. CYCLOBENZAPRINE HYDROCHLORIDE [Concomitant]
     Active Substance: CYCLOBENZAPRINE HYDROCHLORIDE
     Dosage: UNK
  30. AMIODARONE HYDROCHLORIDE [Concomitant]
     Active Substance: AMIODARONE HYDROCHLORIDE
     Dosage: UNK
  31. ABILIFY [Concomitant]
     Active Substance: ARIPIPRAZOLE
     Dosage: UNK
  32. METRONIDAZOLE [Concomitant]
     Active Substance: METRONIDAZOLE
     Dosage: UNK
  33. ACETYLCYSTEINE [Concomitant]
     Active Substance: ACETYLCYSTEINE
     Dosage: UNK
  34. ATORVASTATIN CALCIUM [Concomitant]
     Active Substance: ATORVASTATIN CALCIUM
     Dosage: UNK
  35. MUPIROCIN [Concomitant]
     Active Substance: MUPIROCIN
     Dosage: UNK
  36. XANAX [Concomitant]
     Active Substance: ALPRAZOLAM
     Dosage: UNK
  37. IMODIUM A-D [Concomitant]
     Active Substance: LOPERAMIDE HYDROCHLORIDE
     Dosage: UNK
  38. CYMBALTA [Concomitant]
     Active Substance: DULOXETINE HYDROCHLORIDE
     Dosage: UNK
  39. CoQmax ubiquinol [Concomitant]
     Dosage: UNK
  40. CLONIDINE HYDROCHLORIDE [Concomitant]
     Active Substance: CLONIDINE HYDROCHLORIDE
     Dosage: UNK
  41. NAPROXEN [Concomitant]
     Active Substance: NAPROXEN
     Dosage: UNK
  42. PROAIR HFA [Concomitant]
     Active Substance: ALBUTEROL SULFATE
     Dosage: UNK
  43. LEVOCARNITINE [Concomitant]
     Active Substance: LEVOCARNITINE
     Dosage: UNK
  44. BACTRIM [Concomitant]
     Active Substance: SULFAMETHOXAZOLE\TRIMETHOPRIM
     Dosage: UNK
  45. ALBUTEROL SULFATE [Concomitant]
     Active Substance: ALBUTEROL SULFATE
     Dosage: UNK
  46. Calcium plus magnesium [Concomitant]
     Dosage: UNK
  47. DIGOXIN [Concomitant]
     Active Substance: DIGOXIN
     Dosage: UNK
  48. ALPHA LIPOIC ACID [Concomitant]
     Active Substance: .ALPHA.-LIPOIC ACID
     Dosage: UNK
  49. SPIRONOLACTONE [Concomitant]
     Active Substance: SPIRONOLACTONE
     Dosage: UNK
  50. ACETYLCARNITINE [Concomitant]
     Active Substance: ACETYLCARNITINE
     Dosage: UNK
  51. FERROUS SULFATE [Concomitant]
     Active Substance: FERROUS SULFATE
     Dosage: UNK
  52. BIOTIN [Concomitant]
     Active Substance: BIOTIN
     Dosage: UNK
  53. GLUCOSAMINE [Concomitant]
     Active Substance: GLUCOSAMINE
     Dosage: UNK
  54. VITAMIN D3 [Concomitant]
     Active Substance: CHOLECALCIFEROL
     Dosage: UNK
  55. LORATADINE [Concomitant]
     Active Substance: LORATADINE
     Dosage: UNK
  56. CEPHALEXIN [Concomitant]
     Active Substance: CEPHALEXIN
     Dosage: UNK
  57. COENZYME Q10 [Concomitant]
     Active Substance: DIETARY SUPPLEMENT\UBIDECARENONE
     Dosage: UNK
  58. AZATHIOPRINE [Concomitant]
     Active Substance: AZATHIOPRINE
     Dosage: UNK
  59. PROTOPIC [Concomitant]
     Active Substance: TACROLIMUS
     Dosage: UNK
  60. ALENDRONATE [Concomitant]
     Active Substance: ALENDRONATE SODIUM
     Dosage: UNK
  61. COREG [Concomitant]
     Active Substance: CARVEDILOL
     Dosage: UNK
  62. DULOXETINE [Concomitant]
     Active Substance: DULOXETINE
     Dosage: UNK
  63. OMEPRAZOLE [Concomitant]
     Active Substance: OMEPRAZOLE
     Dosage: UNK
  64. HYDROCORTISONE [Concomitant]
     Active Substance: HYDROCORTISONE
     Dosage: UNK
  65. ASIAN GINSENG [Concomitant]
     Active Substance: ASIAN GINSENG
     Dosage: UNK
  66. ALPRAZOLAM [Concomitant]
     Active Substance: ALPRAZOLAM
     Dosage: UNK
  67. TORSEMIDE [Concomitant]
     Active Substance: TORSEMIDE
     Dosage: UNK
  68. FUROSEMIDE [Concomitant]
     Active Substance: FUROSEMIDE
     Dosage: UNK
  69. PREGABALIN [Concomitant]
     Active Substance: PREGABALIN
     Dosage: UNK
  70. KLOR-CON M10 [Concomitant]
     Active Substance: POTASSIUM CHLORIDE
     Dosage: UNK
  71. LEVOTHYROXINE [Concomitant]
     Active Substance: LEVOTHYROXINE
     Dosage: UNK
  72. DOCUSATE [Concomitant]
     Active Substance: DOCUSATE
     Dosage: UNK
  73. CRUCIFEROUS COMPLETE [Concomitant]
     Dosage: UNK
  74. OXYGEN [Concomitant]
     Active Substance: OXYGEN
     Dosage: UNK
  75. ALENDRONATE SODIUM [Concomitant]
     Active Substance: ALENDRONATE SODIUM
     Dosage: UNK
  76. Ala [Concomitant]
     Dosage: UNK
  77. GLUCOSAMINE SULFATE [Concomitant]
     Active Substance: GLUCOSAMINE SULFATE
     Dosage: UNK
  78. FARXIGA [Concomitant]
     Active Substance: DAPAGLIFLOZIN PROPANEDIOL
     Dosage: UNK
  79. BUMETANIDE [Concomitant]
     Active Substance: BUMETANIDE
     Dosage: UNK
  80. ALPHA LIPOIC ACID [Concomitant]
     Active Substance: .ALPHA.-LIPOIC ACID
     Dosage: UNK
  81. DIMETHYL SULFONE [Concomitant]
     Active Substance: DIMETHYL SULFONE
     Dosage: UNK
  82. ALBUTEROL\IPRATROPIUM [Concomitant]
     Active Substance: ALBUTEROL\IPRATROPIUM
     Dosage: UNK
  83. MENAQUINONE 6 [Concomitant]
     Active Substance: MENAQUINONE 6
     Dosage: UNK
  84. VALACYCLOVIR [Concomitant]
     Active Substance: VALACYCLOVIR HYDROCHLORIDE
     Dosage: UNK
  85. GINKGO [Concomitant]
     Active Substance: GINKGO
     Dosage: UNK
  86. PERCOCET [Concomitant]
     Active Substance: ACETAMINOPHEN\OXYCODONE HYDROCHLORIDE
     Dosage: UNK
  87. HERBALS\TURMERIC [Concomitant]
     Active Substance: HERBALS\TURMERIC
     Dosage: UNK
  88. ZOFRAN [Concomitant]
     Active Substance: ONDANSETRON HYDROCHLORIDE
     Dosage: UNK
  89. AMIODARONE [Concomitant]
     Active Substance: AMIODARONE
     Dosage: UNK
  90. CYCLOBENZAPRINE [Concomitant]
     Active Substance: CYCLOBENZAPRINE
     Dosage: UNK
  91. ALBUTEROL [Concomitant]
     Active Substance: ALBUTEROL
     Dosage: UNK
  92. PRAMIPEXOLE [Concomitant]
     Active Substance: PRAMIPEXOLE
     Dosage: UNK
  93. DIPHENHYDRAMINE HYDROCHLORIDE [Concomitant]
     Active Substance: DIPHENHYDRAMINE HYDROCHLORIDE
     Dosage: UNK
  94. DOXYCYCLINE HYCLATE [Concomitant]
     Active Substance: DOXYCYCLINE HYCLATE
     Dosage: UNK
  95. IMURAN [Concomitant]
     Active Substance: AZATHIOPRINE
     Dosage: UNK
  96. VALACYCLOVIR HYDROCHLORIDE [Concomitant]
     Active Substance: VALACYCLOVIR HYDROCHLORIDE
     Dosage: UNK
  97. VITAMIN B [Concomitant]
     Active Substance: VITAMIN B
     Dosage: UNK
  98. JARDIANCE [Concomitant]
     Active Substance: EMPAGLIFLOZIN
     Dosage: UNK
  99. DOXYCYCLINE [Concomitant]
     Active Substance: DOXYCYCLINE
     Dosage: UNK
  100. ASPIRIN [Concomitant]
     Active Substance: ASPIRIN
     Dosage: UNK
  101. ELIQUIS [Concomitant]
     Active Substance: APIXABAN
     Dosage: UNK
  102. DULCOLAX STOOL SOFTENER [Concomitant]
     Active Substance: DOCUSATE SODIUM
     Dosage: UNK
  103. ONDANSETRON [Concomitant]
     Active Substance: ONDANSETRON
     Dosage: UNK
  104. FOLIC ACID [Concomitant]
     Active Substance: FOLIC ACID
     Dosage: UNK
  105. IRON [Concomitant]
     Active Substance: IRON
     Dosage: UNK
  106. POTASSIUM CHLORIDE [Concomitant]
     Active Substance: POTASSIUM CHLORIDE
     Dosage: UNK
  107. PHENAZOPYRIDINE HCL [Concomitant]
     Active Substance: PHENAZOPYRIDINE HYDROCHLORIDE
     Dosage: UNK

REACTIONS (82)
  - Cervical vertebral fracture [Unknown]
  - Infection [Unknown]
  - Systemic lupus erythematosus [Unknown]
  - Pancreatic mass [Unknown]
  - Renal impairment [Unknown]
  - Hypervolaemia [Unknown]
  - Dehydration [Unknown]
  - Spinal stenosis [Unknown]
  - Pneumonia [Unknown]
  - Sepsis [Unknown]
  - Impaired gastric emptying [Unknown]
  - Urinary tract infection [Not Recovered/Not Resolved]
  - Cardiac failure congestive [Unknown]
  - Cardiac failure [Recovering/Resolving]
  - Loss of consciousness [Unknown]
  - Seizure [Unknown]
  - Pain in extremity [Unknown]
  - Dyspnoea [Unknown]
  - Hypotension [Recovered/Resolved]
  - Peripheral swelling [Unknown]
  - Cough [Unknown]
  - Ejection fraction abnormal [Unknown]
  - Blood pressure abnormal [Unknown]
  - Catheter site erythema [Unknown]
  - Catheter site swelling [Unknown]
  - Poor venous access [Unknown]
  - Disorientation [Unknown]
  - Poor quality sleep [Unknown]
  - Sacral pain [Unknown]
  - Memory impairment [Unknown]
  - Hypersomnia [Unknown]
  - Heart rate irregular [Unknown]
  - Cardiac disorder [Unknown]
  - Discharge [Unknown]
  - Illness [Unknown]
  - Skin infection [Unknown]
  - Skin abrasion [Unknown]
  - Aphasia [Unknown]
  - Muscle strain [Unknown]
  - Wound infection [Unknown]
  - Tenderness [Unknown]
  - Fall [Unknown]
  - Incoherent [Unknown]
  - Eosinophil count increased [Unknown]
  - Insurance issue [Unknown]
  - Dry skin [Unknown]
  - Limb injury [Unknown]
  - Nasopharyngitis [Unknown]
  - Incorrect dose administered [Unknown]
  - Weight increased [Unknown]
  - Fluid retention [Unknown]
  - Product dose omission issue [Unknown]
  - Product use issue [Unknown]
  - Bladder disorder [Unknown]
  - Ejection fraction decreased [Unknown]
  - Skin laceration [Unknown]
  - Sinusitis [Unknown]
  - Feeling abnormal [Recovering/Resolving]
  - Influenza [Unknown]
  - Somnolence [Unknown]
  - Swelling [Unknown]
  - Abdominal distension [Unknown]
  - Asthenia [Recovering/Resolving]
  - Decreased appetite [Unknown]
  - Lymphadenopathy [Unknown]
  - Pain [Unknown]
  - Abdominal pain lower [Unknown]
  - Blood pressure increased [Unknown]
  - Erythema [Unknown]
  - Malaise [Unknown]
  - Hypertension [Unknown]
  - Hyperhidrosis [Unknown]
  - Back pain [Unknown]
  - Diarrhoea [Recovering/Resolving]
  - Arthralgia [Unknown]
  - Pruritus [Unknown]
  - Dizziness [Unknown]
  - Fatigue [Unknown]
  - Nausea [Unknown]
  - Headache [Unknown]
  - Oedema [Unknown]
  - Vomiting [Unknown]
